FAERS Safety Report 4963244-6 (Version None)
Quarter: 2006Q2

REPORT INFORMATION
  Report Type: 
  Country: None (occurrence: None)
  Receive Date: 20060405
  Receipt Date: 20030605
  Transmission Date: 20061013
  Serious: Yes (Hospitalization, Other)
  Sender: FDA-Public Use
  Company Number: US-MERCK-0306USA00744

PATIENT
  Age: 50 Year
  Sex: Male
  Weight: 109 kg

DRUGS (24)
  1. VIOXX [Suspect]
     Indication: ARTHRALGIA
     Route: 048
     Dates: start: 20000601, end: 20010201
  2. VIOXX [Suspect]
     Route: 065
     Dates: start: 20010201, end: 20011120
  3. VIOXX [Suspect]
     Route: 048
     Dates: start: 19990701, end: 19990801
  4. VIOXX [Suspect]
     Route: 048
     Dates: start: 19990801
  5. VIOXX [Suspect]
     Indication: SYSTEMIC LUPUS ERYTHEMATOSUS
     Route: 048
     Dates: start: 20000601, end: 20010201
  6. VIOXX [Suspect]
     Route: 065
     Dates: start: 20010201, end: 20011120
  7. VIOXX [Suspect]
     Route: 048
     Dates: start: 19990701, end: 19990801
  8. VIOXX [Suspect]
     Route: 048
     Dates: start: 19990801
  9. PREDNISONE [Concomitant]
     Route: 065
  10. PREDNISONE [Concomitant]
     Route: 065
  11. VICODIN [Concomitant]
     Route: 065
  12. METHOTREXATE [Concomitant]
     Route: 065
  13. METHOTREXATE [Concomitant]
     Route: 065
  14. FOLIC ACID [Concomitant]
     Route: 065
  15. FOLIC ACID [Concomitant]
     Route: 065
  16. LASIX [Concomitant]
     Route: 065
  17. LASIX [Concomitant]
     Route: 048
  18. CENTRUM SILVER [Concomitant]
     Route: 065
  19. CAL-CITRATE [Concomitant]
     Route: 065
  20. LOVENOX [Concomitant]
     Route: 065
  21. COUMADIN [Concomitant]
     Route: 065
  22. PLAVIX [Concomitant]
     Route: 065
  23. ZOLOFT [Concomitant]
     Route: 065
  24. ACIPHEX [Concomitant]
     Route: 065

REACTIONS (27)
  - ANGINA PECTORIS [None]
  - ARTHRALGIA [None]
  - ASTHENIA [None]
  - BLOOD PRESSURE INCREASED [None]
  - CONVULSION [None]
  - CORONARY ARTERY DISEASE [None]
  - DEPRESSION [None]
  - DRUG INEFFECTIVE [None]
  - HAEMATOCRIT DECREASED [None]
  - HEADACHE [None]
  - INTERNATIONAL NORMALISED RATIO DECREASED [None]
  - JOINT INJURY [None]
  - JOINT SWELLING [None]
  - LACUNAR INFARCTION [None]
  - LUNG NEOPLASM [None]
  - MITRAL VALVE INCOMPETENCE [None]
  - MUSCLE SPASMS [None]
  - MYOCARDIAL INFARCTION [None]
  - OSTEOPENIA [None]
  - PAIN IN EXTREMITY [None]
  - PROTHROMBIN TIME ABNORMAL [None]
  - PROTHROMBIN TIME PROLONGED [None]
  - RASH MACULO-PAPULAR [None]
  - RHEUMATOID ARTHRITIS [None]
  - ROAD TRAFFIC ACCIDENT [None]
  - SYNOVIAL CYST [None]
  - TRANSIENT ISCHAEMIC ATTACK [None]
